FAERS Safety Report 19413388 (Version 1)
Quarter: 2021Q2

REPORT INFORMATION
  Report Type: Spontaneous
  Country: US (occurrence: US)
  Receive Date: 20210614
  Receipt Date: 20210614
  Transmission Date: 20210717
  Serious: Yes (Hospitalization)
  Sender: FDA-Public Use
  Company Number: US-LUNDBECK-DKLU3029526

PATIENT
  Age: 77 Year
  Sex: Male

DRUGS (1)
  1. NORTHERA [Suspect]
     Active Substance: DROXIDOPA
     Indication: PARKINSON^S DISEASE
     Route: 048
     Dates: start: 20201027

REACTIONS (3)
  - Fall [Recovered/Resolved]
  - Orthostatic hypotension [Not Recovered/Not Resolved]
  - Face injury [Recovering/Resolving]
